FAERS Safety Report 21568134 (Version 1)
Quarter: 2022Q4

REPORT INFORMATION
  Report Type: Spontaneous
  Country: US (occurrence: None)
  Receive Date: 20221107
  Receipt Date: 20221107
  Transmission Date: 20230113
  Serious: Yes (Hospitalization)
  Sender: FDA-Public Use
  Company Number: None

PATIENT
  Age: 76 Year
  Sex: Male
  Weight: 100 kg

DRUGS (1)
  1. ASCORBIC ACID [Suspect]
     Active Substance: ASCORBIC ACID
     Dosage: 500 MG EVERY DAY PO
     Route: 048
     Dates: start: 20220301, end: 20221006

REACTIONS (9)
  - Urosepsis [None]
  - Pyrexia [None]
  - Delirium [None]
  - Acute kidney injury [None]
  - Nephrolithiasis [None]
  - Proteus infection [None]
  - Septic shock [None]
  - Urinary tract infection [None]
  - Bacteraemia [None]

NARRATIVE: CASE EVENT DATE: 20221004
